FAERS Safety Report 13731596 (Version 1)
Quarter: 2017Q3

REPORT INFORMATION
  Report Type: Spontaneous
  Country: US (occurrence: US)
  Receive Date: 20170707
  Receipt Date: 20170707
  Transmission Date: 20171127
  Serious: Yes (Other)
  Sender: FDA-Public Use
  Company Number: US-FRESENIUS KABI-FK201705831

PATIENT
  Age: 40 Year
  Sex: Female

DRUGS (2)
  1. ALCOHOL. [Suspect]
     Active Substance: ALCOHOL
     Indication: ARTERIOVENOUS MALFORMATION
     Route: 065
  2. BLEOMYCIN [Suspect]
     Active Substance: BLEOMYCIN SULFATE
     Indication: ARTERIOVENOUS MALFORMATION
     Route: 065

REACTIONS (3)
  - Medication error [Unknown]
  - Radial nerve injury [Unknown]
  - Off label use [Unknown]
